FAERS Safety Report 8618202-7 (Version None)
Quarter: 2012Q3

REPORT INFORMATION
  Report Type: 
  Country: None (occurrence: None)
  Receive Date: 20120824
  Receipt Date: 20110926
  Transmission Date: 20120928
  Serious: No
  Sender: FDA-Public Use
  Company Number: US-ASTRAZENECA-2011SE54348

PATIENT
  Age: 76 Year
  Sex: Female

DRUGS (1)
  1. SYMBICORT [Suspect]
     Dosage: 160/4.5 MCG,  DAILY
     Route: 055

REACTIONS (3)
  - PAIN [None]
  - SCIATICA [None]
  - JOINT DISLOCATION [None]
